FAERS Safety Report 17181766 (Version 1)
Quarter: 2019Q4

REPORT INFORMATION
  Report Type: Spontaneous
  Country: US (occurrence: US)
  Receive Date: 20191220
  Receipt Date: 20191220
  Transmission Date: 20200122
  Serious: Yes (Death)
  Sender: FDA-Public Use
  Company Number: US-BEH-2019110761

PATIENT
  Age: 41 Year
  Sex: Male

DRUGS (3)
  1. FOSCARNET [Concomitant]
     Active Substance: FOSCARNET
     Indication: ENCEPHALITIS CYTOMEGALOVIRUS
     Dosage: 60 MILLIGRAM/KILOGRAM, EVERY 12 HOURS
     Route: 065
  2. CIDOFOVIR. [Concomitant]
     Active Substance: CIDOFOVIR
     Indication: ENCEPHALITIS CYTOMEGALOVIRUS
     Dosage: 5 MILLIGRAM/KILOGRAM, ONCE WEEKLY
     Route: 042
  3. HUMAN IMMUNOGLOBULIN (INN) [Suspect]
     Active Substance: HUMAN IMMUNOGLOBULIN G
     Indication: ENCEPHALITIS CYTOMEGALOVIRUS
     Dosage: 500 MILLIGRAM/KILOGRAM, EVERY 48 HOURS
     Route: 042

REACTIONS (2)
  - Product use in unapproved indication [Fatal]
  - Drug ineffective for unapproved indication [Fatal]
